FAERS Safety Report 12365603 (Version 2)
Quarter: 2022Q4

REPORT INFORMATION
  Report Type: Other
  Country: CN (occurrence: None)
  Receive Date: 20160513
  Receipt Date: 20221213
  Transmission Date: 20230113
  Serious: Yes (Death, Other)
  Sender: FDA-Public Use
  Company Number: CN-ROCHE-1755331

PATIENT

DRUGS (14)
  1. MYCOPHENOLATE MOFETIL [Suspect]
     Active Substance: MYCOPHENOLATE MOFETIL
     Indication: Prophylaxis against graft versus host disease
     Route: 048
  2. IDARUBICIN [Suspect]
     Active Substance: IDARUBICIN
     Indication: Prophylaxis against graft versus host disease
     Dosage: FROM DAY -11 TO -9
     Route: 042
  3. BUSULFAN [Suspect]
     Active Substance: BUSULFAN
     Indication: Prophylaxis against graft versus host disease
     Dosage: FROM DAY -6 TO -4
     Route: 042
  4. BUSULFAN [Suspect]
     Active Substance: BUSULFAN
     Dosage: IN DIVIDED, FROM DAY -7 TO -5
     Route: 042
  5. CYCLOPHOSPHAMIDE [Suspect]
     Active Substance: CYCLOPHOSPHAMIDE
     Indication: Prophylaxis against graft versus host disease
     Dosage: 1.8 G/M2 FROM DAY -3 TO -2
     Route: 042
  6. CYCLOPHOSPHAMIDE [Suspect]
     Active Substance: CYCLOPHOSPHAMIDE
     Dosage: 1.8 G/M2, FROM DAY -4 TO -3
     Route: 042
  7. HYDROXYUREA [Suspect]
     Active Substance: HYDROXYUREA
     Indication: Prophylaxis against graft versus host disease
     Dosage: ON DAY -9
     Route: 048
  8. CYTARABINE [Suspect]
     Active Substance: CYTARABINE
     Indication: Prophylaxis against graft versus host disease
     Dosage: 2 G/M2 ON DAY -8
     Route: 042
  9. SEMUSTINE [Suspect]
     Active Substance: SEMUSTINE
     Indication: Prophylaxis against graft versus host disease
     Dosage: ON DAY -2
     Route: 048
  10. CYCLOSPORINE [Suspect]
     Active Substance: CYCLOSPORINE
     Indication: Prophylaxis against graft versus host disease
     Dosage: FROM DAY -1 UNTIL BOWEL FUNCTION RETURNED TO NORMAL, THEN THE PATIENTS WAS SWITCHED TO ORAL FORMULAT
     Route: 042
  11. METHOTREXATE [Suspect]
     Active Substance: METHOTREXATE
     Indication: Prophylaxis against graft versus host disease
     Dosage: ON DAY +1 AND 10 MG/M2 ON DAYS +3, +6 AND +11.
     Route: 042
  12. BASILIXIMAB [Suspect]
     Active Substance: BASILIXIMAB
     Indication: Prophylaxis against graft versus host disease
     Dosage: BY 40-MINUTE ON DAY 0 AND +4
     Route: 042
  13. TACROLIMUS [Suspect]
     Active Substance: TACROLIMUS
     Indication: Prophylaxis against graft versus host disease
     Route: 065
  14. FLUDARABINE [Suspect]
     Active Substance: FLUDARABINE PHOSPHATE
     Indication: Prophylaxis against graft versus host disease
     Route: 065

REACTIONS (15)
  - Infection [Fatal]
  - Bacterial sepsis [Fatal]
  - Fungal infection [Fatal]
  - Intracranial infection [Fatal]
  - Pneumonia [Fatal]
  - Venoocclusive liver disease [Unknown]
  - Pharyngeal inflammation [Unknown]
  - Cystitis haemorrhagic [Unknown]
  - Cytomegalovirus infection [Unknown]
  - Pneumonia bacterial [Unknown]
  - Cytomegalovirus infection reactivation [Unknown]
  - Cytomegalovirus viraemia [Unknown]
  - Epstein-Barr virus infection [Unknown]
  - Bacterial infection [Unknown]
  - Off label use [Unknown]
